FAERS Safety Report 7887884-X (Version None)
Quarter: 2011Q4

REPORT INFORMATION
  Report Type: 
  Country: None (occurrence: None)
  Receive Date: 20111103
  Receipt Date: 20111103
  Transmission Date: 20120403
  Serious: No
  Sender: FDA-Public Use
  Company Number: None

PATIENT
  Age: 66 Year
  Sex: Female
  Weight: 65.77 kg

DRUGS (2)
  1. LATISSE [Suspect]
     Indication: BLEPHARITIS
     Dosage: 1 DROP
     Dates: start: 20090115, end: 20111020
  2. LATISSE [Suspect]
     Indication: EYELIDS PRURITUS
     Dosage: 1 DROP
     Dates: start: 20090115, end: 20111020

REACTIONS (2)
  - BLEPHARITIS [None]
  - EYELIDS PRURITUS [None]
